FAERS Safety Report 10021992 (Version 5)
Quarter: 2015Q2

REPORT INFORMATION
  Report Type: Spontaneous
  Country: US (occurrence: US)
  Receive Date: 20140319
  Receipt Date: 20150604
  Transmission Date: 20150821
  Serious: Yes (Hospitalization, Other)
  Sender: FDA-Public Use
  Company Number: US-SANOFI-AVENTIS-2012SA003149

PATIENT
  Age: 78 Year
  Sex: Male

DRUGS (6)
  1. NIASPAN [Concomitant]
     Active Substance: NIACIN
  2. PLAVIX [Suspect]
     Active Substance: CLOPIDOGREL BISULFATE
     Route: 048
     Dates: start: 20080315, end: 20091229
  3. AMBIEN CR [Concomitant]
     Active Substance: ZOLPIDEM TARTRATE
     Route: 048
  4. ZOCOR [Concomitant]
     Active Substance: SIMVASTATIN
  5. LISINOPRIL. [Concomitant]
     Active Substance: LISINOPRIL
     Route: 048
  6. LIDODERM [Concomitant]
     Active Substance: LIDOCAINE
     Dosage: 1 PATCH TO THE AFFECTED AREA, LEAVE FOR 12 HOURS, REMOVE AND LEAVE OFF FOR 12 HOURS

REACTIONS (8)
  - Cardiac arrest [Not Recovered/Not Resolved]
  - Gastrointestinal ulcer [Unknown]
  - Dyspnoea [Unknown]
  - Dyspepsia [Unknown]
  - Heart rate irregular [Unknown]
  - Multiple injuries [Unknown]
  - Internal haemorrhage [Unknown]
  - Gastrointestinal haemorrhage [Unknown]

NARRATIVE: CASE EVENT DATE: 20090413
